FAERS Safety Report 6913691-8 (Version None)
Quarter: 2010Q3

REPORT INFORMATION
  Report Type: 
  Country: None (occurrence: None)
  Receive Date: 20100806
  Receipt Date: 20100806
  Transmission Date: 20110219
  Serious: No
  Sender: FDA-Public Use
  Company Number: None

PATIENT

DRUGS (1)
  1. ASTEPRO [Suspect]
     Indication: MULTIPLE ALLERGIES
     Dosage: 205.5 MCG 2 TIMES EACH NOSTRIL ONCE DAILY
     Dates: start: 20100501

REACTIONS (3)
  - HUNGER [None]
  - INCREASED APPETITE [None]
  - PRODUCT LABEL ISSUE [None]
